FAERS Safety Report 11043762 (Version 1)
Quarter: 2015Q2

REPORT INFORMATION
  Report Type: Spontaneous
  Country: FR (occurrence: FR)
  Receive Date: 20150417
  Receipt Date: 20150417
  Transmission Date: 20150821
  Serious: Yes (Hospitalization)
  Sender: FDA-Public Use
  Company Number: FR-SA-2015SA048663

PATIENT
  Age: 90 Year
  Sex: Male

DRUGS (12)
  1. CORDARONE [Concomitant]
     Active Substance: AMIODARONE HYDROCHLORIDE
     Dosage: 200 MG BID 5 D/7
  2. TAVANIC [Suspect]
     Active Substance: LEVOFLOXACIN
     Indication: LUNG DISORDER
     Route: 065
     Dates: start: 20150302, end: 20150302
  3. RISPERDAL [Suspect]
     Active Substance: RISPERIDONE
     Indication: CONFUSIONAL STATE
     Route: 065
     Dates: start: 20150302, end: 20150312
  4. HEMIGOXINE NATIVELLE [Concomitant]
     Active Substance: DIGOXIN
     Dosage: 0.125 MG 1 D/2
  5. SPECIAFOLDINE [Concomitant]
     Active Substance: FOLIC ACID
     Dosage: 5 MG 5 TIMES/WEEK
  6. LOVENOX [Suspect]
     Active Substance: ENOXAPARIN SODIUM
     Route: 065
     Dates: start: 20150302, end: 20150304
  7. XATRAL [Suspect]
     Active Substance: ALFUZOSIN
     Indication: BLADDER DISORDER
     Route: 065
     Dates: start: 20150302
  8. KARDEGIC [Concomitant]
     Active Substance: ASPIRIN LYSINE
  9. KALEORID [Concomitant]
     Active Substance: POTASSIUM CHLORIDE
  10. AUGMENTIN [Suspect]
     Active Substance: AMOXICILLIN\CLAVULANATE POTASSIUM
     Indication: LUNG DISORDER
     Route: 048
     Dates: start: 20150302, end: 20150306
  11. RISORDAN [Suspect]
     Active Substance: ISOSORBIDE DINITRATE
     Indication: CARDIAC FAILURE
     Route: 065
     Dates: start: 20150302, end: 20150302
  12. LASILIX [Concomitant]
     Active Substance: FUROSEMIDE

REACTIONS (1)
  - Haemolytic anaemia [Not Recovered/Not Resolved]

NARRATIVE: CASE EVENT DATE: 20150304
